FAERS Safety Report 7477592-1 (Version None)
Quarter: 2011Q2

REPORT INFORMATION
  Report Type: 
  Country: None (occurrence: None)
  Receive Date: 20110511
  Receipt Date: 20110511
  Transmission Date: 20111010
  Serious: Yes (Other)
  Sender: FDA-Public Use
  Company Number: None

PATIENT
  Age: 10 Year
  Sex: Male
  Weight: 28.123 kg

DRUGS (2)
  1. CELLCEPT [Suspect]
     Indication: KIDNEY TRANSPLANT REJECTION
     Dosage: 1 ML Q 12 HOURS PO
     Route: 048
     Dates: start: 20010403, end: 20110510
  2. CELLCEPT [Suspect]
     Indication: PROPHYLAXIS
     Dosage: 1 ML Q 12 HOURS PO
     Route: 048
     Dates: start: 20010403, end: 20110510

REACTIONS (1)
  - DRUG DISPENSING ERROR [None]
